FAERS Safety Report 9656637 (Version 1)
Quarter: 2013Q4

REPORT INFORMATION
  Report Type: Report from Study
  Country: GR (occurrence: GR)
  Receive Date: 20131030
  Receipt Date: 20131030
  Transmission Date: 20140711
  Serious: Yes (Death)
  Sender: FDA-Public Use
  Company Number: GR-ASTELLAS-2013US011219

PATIENT
  Age: 77 Year
  Sex: Female

DRUGS (3)
  1. ERLOTINIB TABLET [Suspect]
     Indication: LUNG NEOPLASM MALIGNANT
     Dosage: 150 MG, UID/QD
     Route: 048
     Dates: start: 201111
  2. ERLOTINIB TABLET [Suspect]
     Dosage: 100 MG, UID/QD
     Route: 048
     Dates: start: 201202, end: 201306
  3. SANDOSTATIN LAR [Concomitant]
     Indication: LUNG NEOPLASM MALIGNANT
     Dosage: UNK, MONTHLY
     Route: 065
     Dates: start: 201012

REACTIONS (2)
  - Death [Fatal]
  - Diarrhoea [Unknown]
